FAERS Safety Report 5943016-6 (Version None)
Quarter: 2008Q4

REPORT INFORMATION
  Report Type: 
  Country: None (occurrence: None)
  Receive Date: 20081103
  Receipt Date: 20081019
  Transmission Date: 20090506
  Serious: No
  Sender: FDA-Public Use
  Company Number: US024889

PATIENT
  Sex: Male

DRUGS (3)
  1. FENTORA [Suspect]
     Indication: TRIGEMINAL NEURALGIA
     Dosage: 100 UG PRN BUCCAL
     Route: 002
     Dates: start: 20060101
  2. FENTORA [Suspect]
     Indication: TRIGEMINAL NEURALGIA
     Dosage: 200 UG  BUCCAL
     Route: 002
     Dates: start: 20060101
  3. HYDROMORPHONE HCL [Suspect]
     Indication: TRIGEMINAL NEURALGIA
     Dosage: 4 MG Q4HR

REACTIONS (1)
  - INCORRECT ROUTE OF DRUG ADMINISTRATION [None]
